FAERS Safety Report 11001766 (Version 1)
Quarter: 2015Q2

REPORT INFORMATION
  Report Type: Spontaneous
  Country: GB (occurrence: GB)
  Receive Date: 20150408
  Receipt Date: 20150408
  Transmission Date: 20150821
  Serious: Yes (Life-Threatening, Other)
  Sender: FDA-Public Use
  Company Number: GB-ASTRAZENECA-2015SE30732

PATIENT
  Age: 54 Year
  Sex: Male
  Weight: 91 kg

DRUGS (12)
  1. ATORVASTATIN [Concomitant]
     Active Substance: ATORVASTATIN
  2. OMEPRAZOLE. [Concomitant]
     Active Substance: OMEPRAZOLE
  3. DAPAGLIFLOZIN [Suspect]
     Active Substance: DAPAGLIFLOZIN
     Indication: TYPE 2 DIABETES MELLITUS
     Route: 048
     Dates: start: 20141007, end: 20141219
  4. AMLODIPINE [Concomitant]
     Active Substance: AMLODIPINE BESYLATE
  5. GLICLAZIDE [Concomitant]
     Active Substance: GLICLAZIDE
  6. LATANOPROST. [Concomitant]
     Active Substance: LATANOPROST
  7. SILDENAFIL. [Concomitant]
     Active Substance: SILDENAFIL
  8. SITAGLIPTIN [Concomitant]
     Active Substance: SITAGLIPTIN
  9. ASPIRIN. [Concomitant]
     Active Substance: ASPIRIN
  10. COCODAMOL [Concomitant]
     Active Substance: ACETAMINOPHEN\CODEINE PHOSPHATE
  11. DIFFLAM [Concomitant]
     Active Substance: BENZYDAMINE HYDROCHLORIDE
  12. LACTULOSE. [Concomitant]
     Active Substance: LACTULOSE

REACTIONS (1)
  - Thrombotic thrombocytopenic purpura [Recovered/Resolved]

NARRATIVE: CASE EVENT DATE: 20141219
